FAERS Safety Report 8609356-7 (Version None)
Quarter: 2012Q3

REPORT INFORMATION
  Report Type: 
  Country: None (occurrence: None)
  Receive Date: 20120821
  Receipt Date: 20120813
  Transmission Date: 20120928
  Serious: Yes (Hospitalization, Other)
  Sender: FDA-Public Use
  Company Number: US-US-EMD SERONO, INC.-7056239

PATIENT
  Sex: Female
  Weight: 54 kg

DRUGS (2)
  1. ANTIDEPRESSANTS [Concomitant]
     Indication: DEPRESSION
  2. REBIF [Suspect]
     Indication: MULTIPLE SCLEROSIS
     Dates: start: 20070425, end: 20110101

REACTIONS (8)
  - THROMBOSIS [None]
  - COLOUR BLINDNESS ACQUIRED [None]
  - ESCHERICHIA INFECTION [None]
  - BLOOD IRON DECREASED [None]
  - BLOOD TEST ABNORMAL [None]
  - MULTIPLE SCLEROSIS RELAPSE [None]
  - PNEUMONIA [None]
  - CD4 LYMPHOCYTES DECREASED [None]
